FAERS Safety Report 14416619 (Version 4)
Quarter: 2018Q4

REPORT INFORMATION
  Report Type: Spontaneous
  Country: US (occurrence: US)
  Receive Date: 20180122
  Receipt Date: 20181015
  Transmission Date: 20190204
  Serious: Yes (Death, Hospitalization)
  Sender: FDA-Public Use
  Company Number: US-ACTELION-A-NJ2018-165820

PATIENT
  Age: 72 Year
  Sex: Female

DRUGS (8)
  1. TORSEMIDE. [Concomitant]
     Active Substance: TORSEMIDE
     Dosage: UNK
     Dates: start: 20171203
  2. SPIRONOLACTONE. [Concomitant]
     Active Substance: SPIRONOLACTONE
     Dosage: UNK
     Dates: start: 20171205
  3. SILDENAFIL. [Concomitant]
     Active Substance: SILDENAFIL
  4. WARFARIN [Concomitant]
     Active Substance: WARFARIN
     Dosage: UNK
     Dates: start: 20171205
  5. FLOLAN [Concomitant]
     Active Substance: EPOPROSTENOL SODIUM
     Indication: PULMONARY HYPERTENSION
     Dosage: UNK
     Route: 042
     Dates: start: 20171204
  6. OPSUMIT [Suspect]
     Active Substance: MACITENTAN
     Indication: PULMONARY HYPERTENSION
     Dosage: 10 MG, QD
     Route: 048
     Dates: start: 20171024, end: 20171128
  7. NOREPINEPHRINE. [Concomitant]
     Active Substance: NOREPINEPHRINE
     Dosage: UNK
     Dates: start: 20171203
  8. LORAZEPAM. [Concomitant]
     Active Substance: LORAZEPAM
     Dosage: UNK
     Dates: start: 20171205

REACTIONS (7)
  - Hypoxia [Fatal]
  - Pulmonary arterial hypertension [Fatal]
  - Hypotension [Fatal]
  - Deep vein thrombosis [Unknown]
  - Chronic kidney disease [Fatal]
  - Arthralgia [Unknown]
  - Oxygen saturation decreased [Unknown]

NARRATIVE: CASE EVENT DATE: 20171130
